FAERS Safety Report 23513510 (Version 1)
Quarter: 2024Q1

REPORT INFORMATION
  Report Type: Report from Study
  Country: GB (occurrence: GB)
  Receive Date: 20240212
  Receipt Date: 20240212
  Transmission Date: 20240410
  Serious: Yes (Other)
  Sender: FDA-Public Use
  Company Number: GB-002147023-NVSC2024GB014596

PATIENT
  Age: 43 Year
  Sex: Female

DRUGS (2)
  1. KESIMPTA [Suspect]
     Active Substance: OFATUMUMAB
     Indication: Relapsing-remitting multiple sclerosis
     Dosage: 20 MG, OTHER (STARTING DOSES: ONCE A WEEK MAINTENANCE DOSES: ONCE A MONTH)
     Route: 058
     Dates: start: 20240111
  2. KESIMPTA [Suspect]
     Active Substance: OFATUMUMAB
     Dosage: 20 MG, QW
     Route: 058
     Dates: start: 20240111

REACTIONS (11)
  - Lower respiratory tract infection [Not Recovered/Not Resolved]
  - Lower respiratory tract congestion [Unknown]
  - Productive cough [Unknown]
  - Wheezing [Unknown]
  - Abnormal dreams [Recovering/Resolving]
  - Influenza like illness [Recovered/Resolved]
  - Influenza like illness [Unknown]
  - Pyrexia [Recovered/Resolved]
  - Fatigue [Recovering/Resolving]
  - Headache [Recovering/Resolving]
  - Injection site pain [Unknown]

NARRATIVE: CASE EVENT DATE: 20240125
